FAERS Safety Report 10367456 (Version 2)
Quarter: 2014Q3

REPORT INFORMATION
  Report Type: Report from Study
  Country: AU (occurrence: AU)
  Receive Date: 20140807
  Receipt Date: 20140807
  Transmission Date: 20150326
  Serious: Yes (Other)
  Sender: FDA-Public Use
  Company Number: PHHY2013AU081057

PATIENT
  Age: 38 Year
  Sex: Female

DRUGS (3)
  1. SIGNIFOR [Suspect]
     Active Substance: PASIREOTIDE
     Dosage: 600 UG, UNK
     Route: 058
     Dates: start: 20140208
  2. SIGNIFOR [Suspect]
     Active Substance: PASIREOTIDE
     Indication: PITUITARY-DEPENDENT CUSHING^S SYNDROME
     Dosage: 600 UG, BID
     Route: 058
     Dates: end: 201306
  3. SIGNIFOR [Suspect]
     Active Substance: PASIREOTIDE
     Dosage: 300 UG, DAILY
     Route: 058
     Dates: start: 201402

REACTIONS (7)
  - Nausea [Unknown]
  - Vomiting [Unknown]
  - Adrenal insufficiency [Unknown]
  - Injection site reaction [Recovered/Resolved]
  - Blood cortisol decreased [Recovered/Resolved]
  - Blood cortisol increased [Unknown]
  - Asthenia [Recovered/Resolved]

NARRATIVE: CASE EVENT DATE: 20130612
